FAERS Safety Report 4726423-9 (Version None)
Quarter: 2005Q3

REPORT INFORMATION
  Report Type: 
  Country: None (occurrence: None)
  Receive Date: 20050725
  Receipt Date: 20050707
  Transmission Date: 20060218
  Serious: Yes (Hospitalization)
  Sender: FDA-Public Use
  Company Number: 2005BI009667

PATIENT
  Age: 38 Year
  Sex: Female

DRUGS (1)
  1. AVONEX [Suspect]
     Indication: MULTIPLE SCLEROSIS
     Dosage: 30 UG; QW; IM
     Route: 030
     Dates: start: 20031010

REACTIONS (10)
  - ADENOMYOSIS [None]
  - CERVICITIS [None]
  - ENDOMETRIAL METAPLASIA [None]
  - FALLOPIAN TUBE CYST [None]
  - FALLOPIAN TUBE DISORDER [None]
  - MENORRHAGIA [None]
  - OVARIAN CYST [None]
  - PAIN [None]
  - UTERINE CERVICAL SQUAMOUS METAPLASIA [None]
  - UTERINE POLYP [None]
